FAERS Safety Report 19067839 (Version 1)
Quarter: 2021Q1

REPORT INFORMATION
  Report Type: Spontaneous
  Country: US (occurrence: US)
  Receive Date: 20210329
  Receipt Date: 20210329
  Transmission Date: 20210420
  Serious: Yes (Other)
  Sender: FDA-Public Use
  Company Number: US-AMGEN-USASP2021043921

PATIENT
  Age: 89 Year
  Sex: Female

DRUGS (1)
  1. PROLIA [Suspect]
     Active Substance: DENOSUMAB
     Indication: OSTEOPOROSIS POSTMENOPAUSAL
     Dosage: UNK
     Route: 065
     Dates: start: 2017

REACTIONS (10)
  - Jaw clicking [Unknown]
  - Arthralgia [Unknown]
  - Back pain [Unknown]
  - Pain [Unknown]
  - Joint dislocation [Unknown]
  - Back disorder [Unknown]
  - Hypertension [Unknown]
  - Atrial fibrillation [Unknown]
  - Salivary gland calculus [Unknown]
  - Gait disturbance [Unknown]

NARRATIVE: CASE EVENT DATE: 202103
